FAERS Safety Report 7730499-4 (Version None)
Quarter: 2011Q3

REPORT INFORMATION
  Report Type: 
  Country: None (occurrence: None)
  Receive Date: 20110901
  Receipt Date: 20110901
  Transmission Date: 20111222
  Serious: Yes (Disabling)
  Sender: FDA-Public Use
  Company Number: None

PATIENT
  Age: 71 Year
  Sex: Female
  Weight: 104.3273 kg

DRUGS (1)
  1. ALCON MYDFRIN [Suspect]
     Indication: OPHTHALMOLOGICAL EXAMINATION
     Dosage: 2.5 1
     Dates: start: 20110517

REACTIONS (2)
  - EYE IRRITATION [None]
  - MUCOUS MEMBRANE DISORDER [None]
